FAERS Safety Report 23699255 (Version 2)
Quarter: 2024Q2

REPORT INFORMATION
  Report Type: Report from Study
  Country: EG (occurrence: EG)
  Receive Date: 20240402
  Receipt Date: 20240403
  Transmission Date: 20240715
  Serious: Yes (Death, Hospitalization)
  Sender: FDA-Public Use
  Company Number: EG-SERVIER-S24003390

PATIENT
  Age: 59 Year
  Sex: Male
  Weight: 69 kg

DRUGS (4)
  1. LONSURF [Suspect]
     Active Substance: TIPIRACIL HYDROCHLORIDE\TRIFLURIDINE
     Indication: Colorectal cancer metastatic
     Dosage: 60 MG, ON DAY 1-5 AND 8-12 OF EACH 28-DAY CYCLE
     Route: 048
     Dates: start: 20240211, end: 20240322
  2. ACTRAPID [Concomitant]
     Active Substance: INSULIN HUMAN
     Indication: Diabetes mellitus
     Dosage: UNK
     Route: 065
  3. TOUJEO [Concomitant]
     Active Substance: INSULIN GLARGINE
     Indication: Diabetes mellitus
     Dosage: UNK, AT NIGHT
     Route: 065
  4. ALDOMET [Concomitant]
     Active Substance: METHYLDOPA
     Indication: Hypertension
     Dosage: UNK
     Route: 065

REACTIONS (5)
  - Epistaxis [Fatal]
  - Monoplegia [Fatal]
  - Internal haemorrhage [Fatal]
  - Cardiac arrest [Fatal]
  - Metastases to lung [Fatal]

NARRATIVE: CASE EVENT DATE: 20240323
